FAERS Safety Report 5497107-7 (Version None)
Quarter: 2007Q4

REPORT INFORMATION
  Report Type: 
  Country: None (occurrence: None)
  Receive Date: 20071025
  Receipt Date: 20071018
  Transmission Date: 20080405
  Serious: Yes (Hospitalization)
  Sender: FDA-Public Use
  Company Number: ES-ASTRAZENECA-2007AC02020

PATIENT
  Age: 21 Year
  Sex: Male

DRUGS (2)
  1. SEROQUEL [Suspect]
     Indication: PSYCHOTIC DISORDER
     Route: 048
     Dates: start: 20040101, end: 20070415
  2. ETUMINA [Suspect]
     Indication: PSYCHOTIC DISORDER
     Route: 048
     Dates: start: 20040101, end: 20070415

REACTIONS (2)
  - CARDIAC FAILURE [None]
  - CONGESTIVE CARDIOMYOPATHY [None]
